FAERS Safety Report 21410627 (Version 1)
Quarter: 2022Q4

REPORT INFORMATION
  Report Type: Report from Study
  Country: US (occurrence: US)
  Receive Date: 20221005
  Receipt Date: 20221005
  Transmission Date: 20230113
  Serious: No
  Sender: FDA-Public Use
  Company Number: US-ABBVIE-4133490

PATIENT
  Sex: Female

DRUGS (10)
  1. HUMIRA [Suspect]
     Active Substance: ADALIMUMAB
     Indication: Psoriatic arthropathy
     Route: 058
  2. IBUPROFEN TAB 800MG, [Concomitant]
     Indication: Product used for unknown indication
  3. CETIRIZINE H TAB 10MG [Concomitant]
     Indication: Product used for unknown indication
  4. ATENOLOL TAB 100MG, [Concomitant]
     Indication: Product used for unknown indication
  5. FOLIC ACID TAB 1MG [Concomitant]
     Indication: Product used for unknown indication
  6. MONTELUKAST TAB 10MG, [Concomitant]
     Indication: Product used for unknown indication
  7. AMLODIPINE B TAB 10MG, [Concomitant]
     Indication: Product used for unknown indication
  8. DULOXETINE H [Concomitant]
     Indication: Product used for unknown indication
  9. CLONAZEPAM [Concomitant]
     Active Substance: CLONAZEPAM
     Indication: Product used for unknown indication
  10. NITROGLYCERI SUB 0.4MG [Concomitant]
     Indication: Product used for unknown indication

REACTIONS (1)
  - Psoriatic arthropathy [Recovered/Resolved]
